FAERS Safety Report 15977985 (Version 2)
Quarter: 2019Q1

REPORT INFORMATION
  Report Type: Report from Study
  Country: None (occurrence: US)
  Receive Date: 20190218
  Receipt Date: 20190316
  Transmission Date: 20190418
  Serious: Yes (Hospitalization)
  Sender: FDA-Public Use
  Company Number: US-ABBVIE-19K-163-2667076-00

PATIENT
  Age: 57 Year
  Sex: Male
  Weight: 96.25 kg

DRUGS (3)
  1. HUMIRA [Suspect]
     Active Substance: ADALIMUMAB
     Indication: HIDRADENITIS
     Route: 058
     Dates: start: 201801, end: 201803
  2. OMEPRAZOLE. [Concomitant]
     Active Substance: OMEPRAZOLE
     Indication: DYSPEPSIA
  3. HUMIRA [Suspect]
     Active Substance: ADALIMUMAB
     Indication: PSORIASIS

REACTIONS (6)
  - Cyst rupture [Unknown]
  - Infection [Recovering/Resolving]
  - Gastric ulcer perforation [Recovering/Resolving]
  - Infected cyst [Recovering/Resolving]
  - Infected cyst [Unknown]
  - Infected cyst [Unknown]

NARRATIVE: CASE EVENT DATE: 2018
